FAERS Safety Report 15351970 (Version 1)
Quarter: 2018Q3

REPORT INFORMATION
  Report Type: Report from Study
  Country: ES (occurrence: ES)
  Receive Date: 20180905
  Receipt Date: 20180905
  Transmission Date: 20181010
  Serious: Yes (Other)
  Sender: FDA-Public Use
  Company Number: ES-PFIZER INC-2018356971

PATIENT
  Age: 44 Year
  Sex: Female

DRUGS (8)
  1. METAMIZOLE [Suspect]
     Active Substance: METAMIZOLE
     Dosage: 1 G, EVERY 6?8H
     Route: 042
     Dates: start: 20170625, end: 20170712
  2. METAMIZOLE [Suspect]
     Active Substance: METAMIZOLE
     Indication: PAIN
     Dosage: 1 G, EVERY 6?8H
     Route: 042
     Dates: start: 20170430, end: 20170502
  3. MEROPENEM. [Suspect]
     Active Substance: MEROPENEM
     Dosage: 1 G, 3X/DAY
     Route: 042
     Dates: start: 20170609, end: 20170614
  4. METAMIZOLE [Suspect]
     Active Substance: METAMIZOLE
     Dosage: 1 G, EVERY 6?8H
     Route: 042
     Dates: start: 20170519, end: 20170523
  5. MEROPENEM. [Suspect]
     Active Substance: MEROPENEM
     Indication: PULMONARY SEPSIS
     Dosage: 1 G, 3X/DAY
     Route: 042
     Dates: start: 20170526, end: 20170531
  6. ENALAPRIL MALEATE. [Concomitant]
     Active Substance: ENALAPRIL MALEATE
     Indication: HYPERTENSION
     Dosage: 10 MG, 2X/DAY
     Route: 048
     Dates: start: 20170514
  7. MEROPENEM. [Suspect]
     Active Substance: MEROPENEM
     Dosage: 1 G, 3X/DAY
     Route: 042
     Dates: start: 20170620, end: 20170622
  8. METAMIZOLE [Suspect]
     Active Substance: METAMIZOLE
     Dosage: 1 G, EVERY 6?8H
     Route: 042
     Dates: start: 20170601, end: 20170619

REACTIONS (1)
  - Cyclic neutropenia [Recovered/Resolved]

NARRATIVE: CASE EVENT DATE: 20170526
